FAERS Safety Report 10236238 (Version 1)
Quarter: 2014Q1

REPORT INFORMATION
  Report Type: Spontaneous
  Country: US (occurrence: None)
  Receive Date: 20140306
  Receipt Date: 20140306
  Transmission Date: 20141002
  Serious: Yes (Other)
  Sender: FDA-Public Use
  Company Number: 163-21880-13030219

PATIENT
  Age: 60 Year
  Sex: Female
  Weight: 79.38 kg

DRUGS (8)
  1. REVLIMID (LENALIDOMIDE) (25 MILLIGRAM, CAPSULES) [Suspect]
     Indication: PLASMA CELL MYELOMA
     Route: 048
     Dates: start: 20110409
  2. FISH OIL (FISH OIL) [Concomitant]
  3. MULTIVITAMINS FOR HER( MULTIVITAMINS) [Concomitant]
  4. NAPROSYN (NAPROXEN) [Concomitant]
  5. RITALIN LA (METHYLPHENIDATE HYDROCHORIDE) [Concomitant]
  6. SIMVASTATIN (SIMVASTATIN) [Concomitant]
  7. ZOMETA (ZOLEDRONIC ACID) [Concomitant]
  8. VACCINES (VACCINES) [Concomitant]

REACTIONS (1)
  - Rotator cuff syndrome [None]
